FAERS Safety Report 24417725 (Version 1)
Quarter: 2024Q4

REPORT INFORMATION
  Report Type: Spontaneous
  Country: US (occurrence: None)
  Receive Date: 20241009
  Receipt Date: 20241009
  Transmission Date: 20250115
  Serious: Yes (Other)
  Sender: Public
  Company Number: None

PATIENT
  Age: 49 Year
  Sex: Female

DRUGS (8)
  1. REGADENOSON [Suspect]
     Active Substance: REGADENOSON
  2. TECHNETIUM TC-99M SESTAMIBI KIT [Suspect]
     Active Substance: TECHNETIUM TC-99M SESTAMIBI
  3. CAFFEINE CITRATE [Suspect]
     Active Substance: CAFFEINE CITRATE
  4. NITROGLYCERIN [Suspect]
     Active Substance: NITROGLYCERIN
  5. AMINOPHYLLINE [Suspect]
     Active Substance: AMINOPHYLLINE
  6. CYCLOBENZAPRJNE IICL JO),JG TAB [Concomitant]
  7. DULOXETINE !!CL 20MG EC CAP [Concomitant]
  8. PREGABALIN I00MG ORAL CAP [Concomitant]

REACTIONS (16)
  - Chest discomfort [None]
  - Chest discomfort [None]
  - Dizziness [None]
  - Musculoskeletal discomfort [None]
  - Musculoskeletal pain [None]
  - Headache [None]
  - Chest pain [None]
  - Ear pain [None]
  - Tinnitus [None]
  - Arthralgia [None]
  - Swelling face [None]
  - Burning sensation [None]
  - Discomfort [None]
  - Pain in jaw [None]
  - Migraine [None]
  - Disease recurrence [None]

NARRATIVE: CASE EVENT DATE: 20241001
